FAERS Safety Report 16983967 (Version 2)
Quarter: 2020Q3

REPORT INFORMATION
  Report Type: Spontaneous
  Country: TW (occurrence: TW)
  Receive Date: 20191101
  Receipt Date: 20200904
  Transmission Date: 20201102
  Serious: Yes (Other)
  Sender: FDA-Public Use
  Company Number: TW-ASTRAZENECA-2019SF52808

PATIENT
  Age: 60 Year
  Sex: Female

DRUGS (3)
  1. EVEROLIMUS. [Concomitant]
     Active Substance: EVEROLIMUS
     Indication: LUNG ADENOCARCINOMA
     Dosage: 5 MG DAILY (QD) FOR 2 WEEKS.
     Route: 065
  2. OSIMERTINIB. [Suspect]
     Active Substance: OSIMERTINIB
     Indication: LUNG ADENOCARCINOMA STAGE I
     Route: 048
  3. OSIMERTINIB. [Suspect]
     Active Substance: OSIMERTINIB
     Indication: LUNG ADENOCARCINOMA STAGE I
     Dosage: IN ADDITION TO EVEROLIMUS
     Route: 048

REACTIONS (7)
  - Acquired gene mutation [Unknown]
  - Malignant transformation [Unknown]
  - Atelectasis [Unknown]
  - Drug resistance [Unknown]
  - Squamous cell carcinoma of lung [Unknown]
  - Malignant neoplasm progression [Unknown]
  - Pleural effusion [Unknown]
